FAERS Safety Report 8775035 (Version 6)
Quarter: 2012Q4

REPORT INFORMATION
  Report Type: 
  Country: US (occurrence: US)
  Receive Date: 20120910
  Receipt Date: 20121203
  Transmission Date: 20130627
  Serious: Yes (Hospitalization, Other)
  Sender: FDA-Public Use
  Company Number: US-009507513-1202USA00028

PATIENT

DRUGS (7)
  1. FOSAMAX [Suspect]
     Indication: OSTEOPOROSIS
     Dosage: 10 mg, qd
     Route: 048
     Dates: start: 199810, end: 200110
  2. FOSAMAX [Suspect]
     Dosage: 70 mg, qw
     Route: 048
     Dates: start: 200111, end: 200709
  3. VITAMINS (UNSPECIFIED) [Concomitant]
     Dosage: UNK UNK, qd
     Route: 048
     Dates: start: 2000
  4. FLAXSEED [Concomitant]
     Dosage: 1000 mg, qd
     Route: 048
     Dates: start: 2000
  5. OMEGA-3 [Concomitant]
     Dosage: 1200 mg, qd
     Route: 048
     Dates: start: 2000
  6. CALCIUM (UNSPECIFIED) [Concomitant]
     Dosage: UNK
     Route: 048
     Dates: start: 2000, end: 2012
  7. GASTROINTESTINAL PREPARATIONS (UNSPECIFIED) [Concomitant]
     Indication: CONSTIPATION

REACTIONS (15)
  - Femur fracture [Unknown]
  - Fall [Unknown]
  - Closed fracture manipulation [Unknown]
  - Haemorrhagic anaemia [Recovering/Resolving]
  - Basal cell carcinoma [Unknown]
  - Adverse event [Unknown]
  - Osteoarthritis [Unknown]
  - Sinus bradycardia [Unknown]
  - Osteopenia [Unknown]
  - Skin neoplasm excision [Unknown]
  - Paranasal sinus hypersecretion [Unknown]
  - Night sweats [Unknown]
  - Otorrhoea [Unknown]
  - Osteoarthritis [Unknown]
  - Drug ineffective [Unknown]
